FAERS Safety Report 7601737-3 (Version None)
Quarter: 2011Q3

REPORT INFORMATION
  Report Type: 
  Country: None (occurrence: None)
  Receive Date: 20110701
  Receipt Date: 20110616
  Transmission Date: 20111222
  Serious: Yes (Hospitalization, Other)
  Sender: FDA-Public Use
  Company Number: AUR-APL-2011-03742

PATIENT
  Age: 67 Year
  Sex: Female

DRUGS (16)
  1. ALPRAZOLAM [Concomitant]
  2. SYNTHROID [Concomitant]
  3. FENTANYL [Concomitant]
  4. FUROSEMIDE [Concomitant]
  5. ATENOLOL [Suspect]
     Indication: PRODUCT USED FOR UNKNOWN INDICATION
     Dosage: 200 MG (100 MG,2 IN 1 D), ORAL
     Route: 048
  6. LISINOPRIL [Suspect]
     Indication: PRODUCT USED FOR UNKNOWN INDICATION
     Dosage: ORAL
     Route: 048
  7. ALISKIREN FUMARATE (ALISKIREN FUMARATE) [Concomitant]
  8. SOTALOL (SOTALOL) [Concomitant]
  9. ASPIRIN [Concomitant]
  10. LASIX [Concomitant]
  11. VERAPAMIL [Concomitant]
  12. DILTIAZEM [Concomitant]
  13. CLONIDINE [Concomitant]
  14. ESOMEPRAZOLE MAGNESIUM [Suspect]
     Indication: PRODUCT USED FOR UNKNOWN INDICATION
     Dosage: (40 MG,1 D), ORAL
     Route: 048
  15. PERCOCET [Concomitant]
  16. POTASSIUM (POTASSIUM) [Concomitant]

REACTIONS (29)
  - RALES [None]
  - BLUNTED AFFECT [None]
  - ATRIAL FLUTTER [None]
  - PNEUMONIA [None]
  - NEUROPATHY PERIPHERAL [None]
  - DYSPNOEA [None]
  - GASTROOESOPHAGEAL REFLUX DISEASE [None]
  - HYPERKALAEMIA [None]
  - PRESYNCOPE [None]
  - CHEST PAIN [None]
  - GASTRIC OPERATION [None]
  - URINARY TRACT INFECTION [None]
  - GAIT DISTURBANCE [None]
  - SICK SINUS SYNDROME [None]
  - BODY TEMPERATURE INCREASED [None]
  - RENAL ARTERY FIBROMUSCULAR DYSPLASIA [None]
  - BIOPSY BREAST [None]
  - PALPITATIONS [None]
  - EAR INFECTION [None]
  - CARDIAC MURMUR [None]
  - HYSTERECTOMY [None]
  - NAUSEA [None]
  - ASTHENIA [None]
  - VERTIGO [None]
  - ATRIAL FIBRILLATION [None]
  - CONNECTIVE TISSUE DISORDER [None]
  - DRUG HYPERSENSITIVITY [None]
  - HYPOTHYROIDISM [None]
  - SYSTEMIC LUPUS ERYTHEMATOSUS [None]
